FAERS Safety Report 10378063 (Version 1)
Quarter: 2014Q1

REPORT INFORMATION
  Report Type: Spontaneous
  Country: US (occurrence: None)
  Receive Date: 20140306
  Receipt Date: 20140306
  Transmission Date: 20141002
  Serious: Yes (Other)
  Sender: FDA-Public Use
  Company Number: 163-21880-13014779

PATIENT
  Age: 72 Year
  Sex: Female
  Weight: 88.91 kg

DRUGS (8)
  1. REVLIMID (LENALIDOMIDE) (25 MILLIGRAM, CAPSULES) [Suspect]
     Indication: PLASMA CELL MYELOMA
     Dosage: 25 MG, 14 IN 14 D, PO
     Route: 048
     Dates: start: 20121112
  2. PRILOSEC (OMEPRAZOLE) (UNKNOWN) [Concomitant]
  3. METOPROLOL (METOPROLOL) (UNKNOWN) [Concomitant]
  4. MORPHINE (MORPHINE) (UNKNOWN) (MORPHINE) [Concomitant]
  5. XANAX (ALPRAZOLAM) (UNKNOWN) [Concomitant]
  6. VALTREX (VALACICLOVIR HYDROCHLORIDE) (UNKNOWN) [Concomitant]
  7. ZOMETA (ZOLEDRONIC ACID) (UNKNOWN) [Concomitant]
  8. COUMADIN (WARFARIN SODIUM) (UNKNOWN) [Concomitant]

REACTIONS (2)
  - Platelet count decreased [None]
  - White blood cell count decreased [None]
